FAERS Safety Report 10230392 (Version 1)
Quarter: 2014Q2

REPORT INFORMATION
  Report Type: Spontaneous
  Country: US (occurrence: US)
  Receive Date: 20140611
  Receipt Date: 20140611
  Transmission Date: 20141212
  Serious: No
  Sender: FDA-Public Use
  Company Number: US-INCYTE CORPORATION-2014IN000551

PATIENT
  Sex: Female

DRUGS (9)
  1. JAKAFI [Suspect]
     Indication: MYELOFIBROSIS
     Dosage: 15 MG, BID
     Route: 048
     Dates: start: 20120130
  2. ZOCOR [Concomitant]
     Dosage: 20 MG, UNK
  3. DIAZEPAM [Concomitant]
     Dosage: 5 MG, UNK
  4. TOPROL XL [Concomitant]
     Dosage: 50 MG, UNK
  5. VALACYCLOVIR HCL PHARMA PAC [Concomitant]
     Dosage: 500 MG, UNK
  6. LYRICA [Concomitant]
     Dosage: 25 MG, UNK
  7. PLAVIX [Concomitant]
     Dosage: 75 MG, UNK
  8. BENICAR HCT [Concomitant]
     Dosage: 40-12.5MG, UNK
  9. AMBIEN [Concomitant]
     Dosage: 10 MG, UNK

REACTIONS (2)
  - Throat irritation [Unknown]
  - Herpes zoster [Unknown]
